FAERS Safety Report 16842360 (Version 3)
Quarter: 2019Q4

REPORT INFORMATION
  Report Type: Report from Study
  Country: None (occurrence: CO)
  Receive Date: 20190924
  Receipt Date: 20191129
  Transmission Date: 20200122
  Serious: Yes (Death, Hospitalization, Other)
  Sender: FDA-Public Use
  Company Number: CO-ABBVIE-19K-036-2923899-00

PATIENT
  Age: 47 Year
  Sex: Male
  Weight: 70 kg

DRUGS (1)
  1. ZEMPLAR [Suspect]
     Active Substance: PARICALCITOL
     Indication: BRONCHOPULMONARY DYSPLASIA
     Route: 048
     Dates: start: 20170729, end: 20190820

REACTIONS (13)
  - Decreased appetite [Recovering/Resolving]
  - Tuberculosis [Not Recovered/Not Resolved]
  - Influenza [Not Recovered/Not Resolved]
  - Disease recurrence [Unknown]
  - Inflammation [Unknown]
  - Pulmonary mycosis [Not Recovered/Not Resolved]
  - Back pain [Unknown]
  - Diarrhoea [Recovering/Resolving]
  - Weight decreased [Unknown]
  - Feeding disorder [Not Recovered/Not Resolved]
  - Pneumonia bacterial [Fatal]
  - Immunodeficiency [Recovering/Resolving]
  - Dysuria [Unknown]

NARRATIVE: CASE EVENT DATE: 2019
